FAERS Safety Report 9669533 (Version 2)
Quarter: 2013Q4

REPORT INFORMATION
  Report Type: Spontaneous
  Country: DE (occurrence: DE)
  Receive Date: 20131105
  Receipt Date: 20131108
  Transmission Date: 20140711
  Serious: Yes (Hospitalization, Other)
  Sender: FDA-Public Use
  Company Number: DE-PFIZER INC-2013313169

PATIENT
  Age: 61 Year
  Sex: Male
  Weight: 70 kg

DRUGS (4)
  1. PANTOZOL [Suspect]
     Dosage: 4-5 TABLETS,UNK
     Route: 048
  2. VALERIAN [Suspect]
     Dosage: UNK
     Route: 048
  3. ACETYLSALICYLIC ACID [Suspect]
     Dosage: 6 G, UNK
     Route: 048
  4. ETHANOL [Suspect]
     Dosage: UNK

REACTIONS (3)
  - Intentional overdose [Recovering/Resolving]
  - Suicide attempt [Recovering/Resolving]
  - Fatigue [Unknown]
